FAERS Safety Report 5907681-1 (Version None)
Quarter: 2008Q4

REPORT INFORMATION
  Report Type: 
  Country: None (occurrence: None)
  Receive Date: 20081003
  Receipt Date: 19980109
  Transmission Date: 20090506
  Serious: Yes (Death, Other)
  Sender: FDA-Public Use
  Company Number: US-ROCHE-92842

PATIENT
  Age: 14 Month
  Sex: Female

DRUGS (1)
  1. ROCEPHIN [Suspect]
     Indication: MENINGITIS
     Route: 030
     Dates: start: 19971213, end: 19971213

REACTIONS (4)
  - COMA [None]
  - CYANOSIS [None]
  - DEATH [None]
  - HYPOTONIA [None]
